FAERS Safety Report 5133644-2 (Version None)
Quarter: 2006Q4

REPORT INFORMATION
  Report Type: 
  Country: None (occurrence: None)
  Receive Date: 20061024
  Receipt Date: 20060822
  Transmission Date: 20070319
  Serious: Yes (Hospitalization)
  Sender: FDA-Public Use
  Company Number: US-ELI_LILLY_AND_COMPANY-US200608004750

PATIENT
  Age: 78 Year
  Sex: Male
  Weight: 74.829 kg

DRUGS (7)
  1. FORTEO [Suspect]
     Indication: OSTEOPOROSIS
     Dosage: 20 UG, DAILY (1/D)
     Route: 058
     Dates: start: 20060520, end: 20060731
  2. PLAVIX                                  /UNK/ [Concomitant]
     Dosage: 25 UNK, UNK
  3. HYDROCHLORZIDE [Concomitant]
     Dosage: 25 UNK, UNK
  4. TAPAZOLE [Concomitant]
     Indication: HYPERTHYROIDISM
     Dosage: 20 UNK, DAILY (1/D)
     Dates: start: 20060101
  5. ZEBETA [Concomitant]
     Dosage: 5 UNK, UNK
     Dates: start: 20060101
  6. NORVASC [Concomitant]
     Dosage: 5 UNK, UNK
  7. PRILOSEC [Concomitant]

REACTIONS (4)
  - FEELING ABNORMAL [None]
  - MUSCULAR WEAKNESS [None]
  - PHARMACEUTICAL PRODUCT COMPLAINT [None]
  - PYREXIA [None]
